FAERS Safety Report 5366299-2 (Version None)
Quarter: 2007Q2

REPORT INFORMATION
  Report Type: 
  Country: None (occurrence: None)
  Receive Date: 20070619
  Receipt Date: 20070619
  Transmission Date: 20071010
  Serious: Yes (Other)
  Sender: FDA-Public Use
  Company Number: None

PATIENT
  Age: 53 Year
  Sex: Female

DRUGS (1)
  1. BENZOCAINE SPRAY 20% [Suspect]
     Indication: ECHOCARDIOGRAM
     Dosage: 3 SPRAYS OROPHARINGE
     Route: 049

REACTIONS (5)
  - BLOOD METHAEMOGLOBIN PRESENT [None]
  - CARDIAC PROCEDURE COMPLICATION [None]
  - CYANOSIS [None]
  - OXYGEN SATURATION DECREASED [None]
  - POST PROCEDURAL COMPLICATION [None]
